FAERS Safety Report 21167591 (Version 1)
Quarter: 2022Q3

REPORT INFORMATION
  Report Type: Spontaneous
  Country: US (occurrence: None)
  Receive Date: 20220803
  Receipt Date: 20220803
  Transmission Date: 20221027
  Serious: No
  Sender: FDA-Public Use
  Company Number: None

PATIENT
  Age: 71 Year
  Sex: Female
  Weight: 58.06 kg

DRUGS (30)
  1. FLUTICASONE PROPIONATE [Suspect]
     Active Substance: FLUTICASONE PROPIONATE
     Indication: Rhinitis
     Dosage: FREQUENCY : TWICE A DAY; 2 PUFFS?
     Route: 050
     Dates: end: 20220728
  2. FLUTICASONE PROPIONATE [Suspect]
     Active Substance: FLUTICASONE PROPIONATE
     Indication: Asthma
  3. ATORVASTATIN [Concomitant]
     Active Substance: ATORVASTATIN
  4. BREO ELLIPTA [Concomitant]
     Active Substance: FLUTICASONE FUROATE\VILANTEROL TRIFENATATE
  5. FLUTICASONE [Concomitant]
     Active Substance: FLUTICASONE
  6. IPROPOPRIUM [Concomitant]
  7. MONTELUKAST [Concomitant]
     Active Substance: MONTELUKAST SODIUM
  8. TRIAMCINOLONE [Concomitant]
     Active Substance: TRIAMCINOLONE
  9. FLIDEL [Concomitant]
  10. BETAMETHASONE [Concomitant]
     Active Substance: BETAMETHASONE
  11. ESOMEPRAZOLE [Concomitant]
     Active Substance: ESOMEPRAZOLE
  12. LAMOTRIGINE [Concomitant]
     Active Substance: LAMOTRIGINE
  13. CALCIUM [Concomitant]
     Active Substance: CALCIUM
  14. ZINC [Concomitant]
     Active Substance: ZINC
  15. MAGNESIUM [Concomitant]
     Active Substance: MAGNESIUM
  16. VITAMIN B COMPLEX [Concomitant]
     Active Substance: CYANOCOBALAMIN\DEXPANTHENOL\NIACINAMIDE\PYRIDOXINE HYDROCHLORIDE\RIBOFLAVIN 5^-PHOSPHATE SODIUM\THIA
  17. VITAMIN C [Concomitant]
     Active Substance: ASCORBIC ACID
  18. VITAMIN D3 [Concomitant]
     Active Substance: CHOLECALCIFEROL
  19. VITAMIN E [Concomitant]
     Active Substance: .ALPHA.-TOCOPHEROL
  20. HERBALS\TURMERIC [Concomitant]
     Active Substance: HERBALS\TURMERIC
  21. CINNAMON [Concomitant]
     Active Substance: CINNAMON
  22. GINGER [Concomitant]
     Active Substance: GINGER
  23. EVENING PRIMROSE OIL\HERBALS [Concomitant]
     Active Substance: EVENING PRIMROSE OIL\HERBALS
  24. FISH OIL [Concomitant]
     Active Substance: FISH OIL
  25. HERBALS [Concomitant]
     Active Substance: HERBALS
  26. CLARITIN [Concomitant]
     Active Substance: LORATADINE
  27. ALLEGRA [Concomitant]
     Active Substance: FEXOFENADINE HYDROCHLORIDE
  28. ZYRTEC [Concomitant]
     Active Substance: CETIRIZINE HYDROCHLORIDE
  29. SYSTANE HYDRATION FOR DRY EYES PRESERVATIVE FREE [Concomitant]
  30. REFRESH NIGHTIME FOR DRY EYES [Concomitant]

REACTIONS (3)
  - Rhinalgia [None]
  - Product substitution issue [None]
  - Inflammation [None]

NARRATIVE: CASE EVENT DATE: 20220601
